FAERS Safety Report 8765698 (Version 2)
Quarter: 2013Q1

REPORT INFORMATION
  Report Type: Spontaneous
  Country: FR (occurrence: FR)
  Receive Date: 20120904
  Receipt Date: 20130222
  Transmission Date: 20140127
  Serious: Yes (Hospitalization, Other)
  Sender: FDA-Public Use
  Company Number: PHHY2012FR075314

PATIENT
  Age: 56 Year
  Sex: Male

DRUGS (11)
  1. GLIVEC [Suspect]
     Indication: CHRONIC LYMPHOCYTIC LEUKAEMIA
     Dosage: 100 MG, DAILY
     Dates: start: 20120321
  2. GLIVEC [Suspect]
     Dosage: 400 MG, DAILY
     Dates: start: 20120419
  3. GLIVEC [Suspect]
     Dosage: 300 MG, DAILY
  4. GLIVEC [Suspect]
     Dosage: 100 MG, DAILY
     Dates: start: 20120611, end: 20120810
  5. CORTANCYL [Suspect]
     Dosage: 35 MG, DAILY
     Dates: start: 20110407
  6. CORTANCYL [Suspect]
     Dosage: 30 MG, DAILY
     Dates: start: 20120611
  7. CORTANCYL [Suspect]
     Dosage: 25 MG, DAILY
     Dates: start: 20120628
  8. CORTANCYL [Suspect]
     Dosage: 20 MG, DAILY
     Dates: start: 20120716
  9. CELLCEPT [Suspect]
     Indication: GRAFT VERSUS HOST DISEASE IN SKIN
     Dosage: 500 MG, TID
     Dates: start: 20110202
  10. CELLCEPT [Suspect]
     Dosage: 1 G, BID
  11. CELLCEPT [Suspect]
     Dosage: 500 MG, TID
     Dates: end: 20120919

REACTIONS (38)
  - Pneumoperitoneum [Unknown]
  - Ascites [Unknown]
  - Lymphopenia [Unknown]
  - Body temperature increased [Unknown]
  - Duodenal ulcer perforation [Unknown]
  - Peritonitis [Unknown]
  - Cholestasis [Unknown]
  - Systemic inflammatory response syndrome [Unknown]
  - C-reactive protein increased [Unknown]
  - Crying [Unknown]
  - Hypogammaglobulinaemia [Recovering/Resolving]
  - Conjunctival irritation [Unknown]
  - General physical condition abnormal [Recovering/Resolving]
  - Blood phosphorus decreased [Unknown]
  - Haptoglobin increased [Unknown]
  - Serum ferritin increased [Unknown]
  - Oral discomfort [Unknown]
  - Reticulocyte count decreased [Unknown]
  - Transferrin decreased [Unknown]
  - Helicobacter test positive [Unknown]
  - Skin discolouration [Unknown]
  - Muscle atrophy [Unknown]
  - Tremor [Not Recovered/Not Resolved]
  - Depression [Unknown]
  - Hypoaesthesia [Unknown]
  - Blood pressure decreased [Recovering/Resolving]
  - Anaemia [Unknown]
  - Fatigue [Unknown]
  - Decreased appetite [Not Recovered/Not Resolved]
  - Weight decreased [Recovering/Resolving]
  - Hypokalaemia [Unknown]
  - Abdominal pain [Recovered/Resolved]
  - Diarrhoea [Unknown]
  - Periorbital oedema [Recovering/Resolving]
  - Abdominal pain upper [Unknown]
  - Rash papular [Unknown]
  - Oedema [Unknown]
  - Abdominal discomfort [Unknown]
